FAERS Safety Report 12172691 (Version 2)
Quarter: 2019Q1

REPORT INFORMATION
  Report Type: Spontaneous
  Country: US (occurrence: US)
  Receive Date: 20160311
  Receipt Date: 20190219
  Transmission Date: 20190417
  Serious: Yes (Other)
  Sender: FDA-Public Use
  Company Number: US-SA-2016SA046500

PATIENT
  Age: 74 Year
  Sex: Female

DRUGS (1)
  1. RENVELA [Suspect]
     Active Substance: SEVELAMER CARBONATE
     Indication: END STAGE RENAL DISEASE
     Dosage: 1600 MG,TID
     Route: 048

REACTIONS (7)
  - Haematochezia [Unknown]
  - Computerised tomogram abnormal [Unknown]
  - Proctalgia [Unknown]
  - Abdominal discomfort [Unknown]
  - Abdominal tenderness [Unknown]
  - Large intestinal ulcer [Unknown]
  - Crystal deposit intestine [Unknown]
